FAERS Safety Report 6247494-7 (Version None)
Quarter: 2009Q2

REPORT INFORMATION
  Report Type: 
  Country: None (occurrence: None)
  Receive Date: 20090626
  Receipt Date: 20090616
  Transmission Date: 20091009
  Serious: Yes (Death, Hospitalization)
  Sender: FDA-Public Use
  Company Number: CZ-TEVA-198655ISR

PATIENT
  Age: 69 Year
  Sex: Male

DRUGS (10)
  1. DOXORUBICIN HCL [Suspect]
     Indication: LYMPHOMA
  2. VINCRISTINE [Suspect]
     Indication: LYMPHOMA
  3. FLUDARABINE PHOSPHATE [Suspect]
     Indication: LYMPHOMA
     Route: 048
     Dates: start: 20060501
  4. CYCLOPHOSPHAMIDE [Suspect]
     Indication: LYMPHOMA
     Dates: start: 20060501
  5. PREDNISONE [Suspect]
     Indication: LYMPHOMA
  6. RITUXIMAB [Suspect]
     Indication: LYMPHOMA
  7. RITUXIMAB [Suspect]
     Dates: start: 20060501
  8. INTERFERON ALFA [Suspect]
     Indication: LYMPHOMA
     Dosage: 6MU
  9. CHLORAMBUCIL [Suspect]
     Indication: LYMPHOMA
  10. ACYCLOVIR [Concomitant]
     Indication: LYMPHOMA
     Dosage: HIGH DOSE

REACTIONS (1)
  - LEUKOENCEPHALOPATHY [None]
